FAERS Safety Report 5155802-3 (Version None)
Quarter: 2006Q4

REPORT INFORMATION
  Report Type: 
  Country: None (occurrence: None)
  Receive Date: 20061113
  Receipt Date: 20061031
  Transmission Date: 20070319
  Serious: Yes (Other)
  Sender: FDA-Public Use
  Company Number: 231551

PATIENT
  Age: 62 Year
  Sex: Female

DRUGS (2)
  1. RITUXAN [Suspect]
     Indication: CHRONIC LYMPHOCYTIC LEUKAEMIA
     Dates: start: 20050101, end: 20050501
  2. ANTIPSYCHOTIC NOS (ANTIPSYCHOTIC NOS) [Concomitant]

REACTIONS (2)
  - DEPRESSION [None]
  - MALIGNANT PLEURAL EFFUSION [None]
